FAERS Safety Report 11414955 (Version 2)
Quarter: 2015Q3

REPORT INFORMATION
  Report Type: Spontaneous
  Country: BR (occurrence: BR)
  Receive Date: 20150825
  Receipt Date: 20150827
  Transmission Date: 20151125
  Serious: Yes (Other)
  Sender: FDA-Public Use
  Company Number: BR-ROCHE-1624302

PATIENT
  Age: 26 Year
  Sex: Male
  Weight: 99 kg

DRUGS (11)
  1. RIVOTRIL [Suspect]
     Active Substance: CLONAZEPAM
     Indication: PANIC DISORDER
  2. NEULEPTIL [Concomitant]
     Active Substance: PERICIAZINE
     Indication: ANXIETY
  3. NEULEPTIL [Concomitant]
     Active Substance: PERICIAZINE
     Indication: PANIC DISORDER
  4. CITALOPRAM [Concomitant]
     Active Substance: CITALOPRAM HYDROBROMIDE
     Indication: PANIC DISORDER
  5. RIVOTRIL [Suspect]
     Active Substance: CLONAZEPAM
     Indication: ANXIETY
  6. CLONAZEPAM. [Suspect]
     Active Substance: CLONAZEPAM
     Indication: PRODUCT USED FOR UNKNOWN INDICATION
     Route: 065
  7. RIVOTRIL [Suspect]
     Active Substance: CLONAZEPAM
     Indication: BIPOLAR DISORDER
  8. RIVOTRIL [Suspect]
     Active Substance: CLONAZEPAM
     Indication: DEPRESSION
     Route: 048
  9. CITALOPRAM [Concomitant]
     Active Substance: CITALOPRAM HYDROBROMIDE
     Indication: DEPRESSION
     Route: 065
  10. CITALOPRAM [Concomitant]
     Active Substance: CITALOPRAM HYDROBROMIDE
     Indication: ANXIETY
  11. NEULEPTIL [Concomitant]
     Active Substance: PERICIAZINE
     Indication: DEPRESSION
     Route: 065

REACTIONS (13)
  - Drug dependence [Unknown]
  - Panic attack [Unknown]
  - Nausea [Unknown]
  - Blood pressure decreased [Unknown]
  - Product taste abnormal [Unknown]
  - Malaise [Unknown]
  - Palpitations [Unknown]
  - Peripheral coldness [Unknown]
  - Bipolar disorder [Unknown]
  - Agitation [Unknown]
  - Dizziness [Unknown]
  - Lip dry [Not Recovered/Not Resolved]
  - Insomnia [Unknown]

NARRATIVE: CASE EVENT DATE: 2013
